FAERS Safety Report 18955675 (Version 2)
Quarter: 2021Q1

REPORT INFORMATION
  Report Type: Report from Study
  Country: US (occurrence: US)
  Receive Date: 20210302
  Receipt Date: 20210326
  Transmission Date: 20210420
  Serious: Yes (Hospitalization)
  Sender: FDA-Public Use
  Company Number: US-ACADIA PHARMACEUTICALS INC.-ACA-2021-PIM-000723

PATIENT
  Age: 80 Year
  Sex: Male

DRUGS (27)
  1. NUPLAZID [Suspect]
     Active Substance: PIMAVANSERIN TARTRATE
     Indication: PARKINSON^S DISEASE
     Dosage: 34 MILLIGRAM, QD
     Route: 048
  2. ASPIRIN 81 [Concomitant]
     Active Substance: ASPIRIN
     Dosage: 81 MILLIGRAM, QD
  3. SINEMET [Concomitant]
     Active Substance: CARBIDOPA\LEVODOPA
     Dosage: 25?100 MG, EVERY NIGHT
     Route: 048
  4. MOBIC [Concomitant]
     Active Substance: MELOXICAM
     Dosage: 15 MILLIGRAM
     Route: 048
  5. MIRAPEX [Suspect]
     Active Substance: PRAMIPEXOLE DIHYDROCHLORIDE
  6. NORVASC [Concomitant]
     Active Substance: AMLODIPINE BESYLATE
     Dosage: 10 MILLIGRAM, QD
     Route: 048
  7. PRINIVIL [Concomitant]
     Active Substance: LISINOPRIL
     Dosage: 5 MILLIGRAM, QD
     Route: 048
  8. TRIAMTERENE. [Concomitant]
     Active Substance: TRIAMTERENE
     Dosage: 37.5 MG, QD
     Route: 048
  9. AMOXIL [Concomitant]
     Active Substance: AMOXICILLIN
     Dosage: 500 MILLIGRAM, TAKE 4 CAPSULES ONE HOUR PRIOR TO APPOINTMENT
     Route: 048
  10. VITAMIN D3 [Concomitant]
     Active Substance: CHOLECALCIFEROL
     Dosage: 50 MCG, QD
     Route: 048
  11. COMTAN [Concomitant]
     Active Substance: ENTACAPONE
     Dosage: 200 MILLIGRAM, BID
     Route: 048
  12. SEROQUEL [Concomitant]
     Active Substance: QUETIAPINE FUMARATE
     Dosage: 25 MILLIGRAM, TAKE 0.5 TABLETS EVERY NIGHT
     Route: 048
  13. NOURIANZ [Concomitant]
     Active Substance: ISTRADEFYLLINE
     Dosage: 20 MILLIGRAM, QD
     Route: 048
  14. ZESTRIL [Concomitant]
     Active Substance: LISINOPRIL
     Dosage: 5 MILLIGRAM, QD
     Route: 048
  15. FLOMAX [Concomitant]
     Active Substance: TAMSULOSIN HYDROCHLORIDE
     Dosage: 0.4 MILLIGRAM
  16. NUPLAZID [Suspect]
     Active Substance: PIMAVANSERIN TARTRATE
     Indication: HALLUCINATION
  17. MELATONIN [Concomitant]
     Active Substance: MELATONIN
     Dosage: 10 MILLIGRAM, QD
     Route: 048
  18. PRAMIPEXOLE. [Concomitant]
     Active Substance: PRAMIPEXOLE
     Dosage: 0.75 MILLIGRAM, EVERY NIGHT AT BEDTIME
     Route: 048
  19. ZOLOFT [Concomitant]
     Active Substance: SERTRALINE HYDROCHLORIDE
     Dosage: 100 MILLIGRAM, QD
     Route: 048
  20. KLONOPIN [Concomitant]
     Active Substance: CLONAZEPAM
     Dosage: 0.5 MG
  21. ROMYCIN [AZITHROMYCIN] [Concomitant]
     Dosage: UNK
     Route: 047
  22. PARCOPA [Concomitant]
     Active Substance: CARBIDOPA\LEVODOPA
     Dosage: 25?100 MG; TAKE 2 TABLETS BY MOUTH SIX TIMES DAILY 7A, 10A. 12PM 2P, 4P, 6P
  23. MULTIVITAMINS [VITAMINS NOS] [Concomitant]
     Active Substance: VITAMINS
     Dosage: 1 TABLET, QD
     Route: 048
  24. BACITRACIN. [Concomitant]
     Active Substance: BACITRACIN
     Dosage: UNK
     Route: 047
  25. CATAPRES?TTS [Concomitant]
     Active Substance: CLONIDINE
     Dosage: 0.2 MG/24 HR; APPLY 1 PATCH TO SKIN LEAVE ON FOR 7 DAYS THEN REPLACE WITH NEW PATCH EVERY WEEK
  26. ARICEPT [Concomitant]
     Active Substance: DONEPEZIL HYDROCHLORIDE
     Dosage: 10 MILLIGRAM, QD
     Route: 048
  27. SANCTURA [Concomitant]
     Active Substance: TROSPIUM CHLORIDE
     Dosage: 20 MILLIGRAM, BID
     Route: 048

REACTIONS (8)
  - Hypogeusia [Unknown]
  - Sleep terror [Unknown]
  - COVID-19 [Recovered/Resolved]
  - Blood pressure abnormal [Unknown]
  - Abnormal dreams [Unknown]
  - Rhinorrhoea [Unknown]
  - Hallucination [Unknown]
  - Anosmia [Unknown]

NARRATIVE: CASE EVENT DATE: 202011
